FAERS Safety Report 8011163-3 (Version None)
Quarter: 2011Q4

REPORT INFORMATION
  Report Type: 
  Country: None (occurrence: None)
  Receive Date: 20111228
  Receipt Date: 20111221
  Transmission Date: 20120403
  Serious: Yes (Other)
  Sender: FDA-Public Use
  Company Number: BR-ABBOTT-11P-020-0879526-00

PATIENT
  Sex: Male
  Weight: 19 kg

DRUGS (4)
  1. DEPAKENE [Suspect]
     Indication: CONVULSION
     Route: 048
  2. CINIPAINA [Concomitant]
     Indication: CONVULSION
     Route: 048
  3. CINIPAINA [Concomitant]
     Route: 048
  4. PHENOBARBITAL TAB [Concomitant]
     Indication: CONVULSION
     Route: 048

REACTIONS (1)
  - LENNOX-GASTAUT SYNDROME [None]
